FAERS Safety Report 6677400-2 (Version None)
Quarter: 2010Q2

REPORT INFORMATION
  Report Type: 
  Country: None (occurrence: None)
  Receive Date: 20100412
  Receipt Date: 20100407
  Transmission Date: 20101027
  Serious: Yes (Death, Other)
  Sender: FDA-Public Use
  Company Number: IT-ELI_LILLY_AND_COMPANY-IT201004001628

PATIENT

DRUGS (2)
  1. GEMCITABINE HCL [Suspect]
     Indication: PANCREATIC CARCINOMA
     Dosage: 1000 MG/M2, WEEKLY (1/W)
     Route: 042
  2. CISPLATIN [Concomitant]
     Indication: PANCREATIC CARCINOMA
     Dosage: 25 MG/M2, OTHER
     Route: 042

REACTIONS (2)
  - DEATH [None]
  - THROMBOCYTOPENIA [None]
